FAERS Safety Report 23158912 (Version 1)
Quarter: 2023Q4

REPORT INFORMATION
  Report Type: Spontaneous
  Country: US (occurrence: None)
  Receive Date: 20231107
  Receipt Date: 20231107
  Transmission Date: 20240110
  Serious: Yes (Other)
  Sender: FDA-Public Use
  Company Number: None

PATIENT
  Sex: 0

DRUGS (1)
  1. TENECTEPLASE [Suspect]
     Active Substance: TENECTEPLASE

REACTIONS (4)
  - Product prescribing error [None]
  - Intercepted product prescribing error [None]
  - Product dose confusion [None]
  - Physical product label issue [None]
